FAERS Safety Report 5460632-9 (Version None)
Quarter: 2007Q3

REPORT INFORMATION
  Report Type: 
  Country: None (occurrence: None)
  Receive Date: 20070918
  Receipt Date: 20070914
  Transmission Date: 20080115
  Serious: Yes (Life-Threatening, Hospitalization)
  Sender: FDA-Public Use
  Company Number: 013-C5013-07090714

PATIENT
  Age: 62 Year
  Sex: Male

DRUGS (1)
  1. CC-5013 (LENALIDOMIDE) (CAPSULES) [Suspect]
     Indication: MULTIPLE MYELOMA
     Dosage: ORAL
     Route: 048

REACTIONS (3)
  - FEBRILE NEUTROPENIA [None]
  - PNEUMONIA [None]
  - SEPSIS [None]
